FAERS Safety Report 4697895-3 (Version None)
Quarter: 2005Q2

REPORT INFORMATION
  Report Type: 
  Country: None (occurrence: None)
  Receive Date: 20050623
  Receipt Date: 20041222
  Transmission Date: 20051028
  Serious: Yes (Hospitalization)
  Sender: FDA-Public Use
  Company Number: FR-NOVOPROD-241295

PATIENT
  Age: 50 Year
  Sex: Male
  Weight: 110 kg

DRUGS (4)
  1. NOVOMIX 30 PENFILL [Suspect]
     Indication: INSULIN-REQUIRING TYPE II DIABETES MELLITUS
     Dates: start: 20041022
  2. AMLODIPINE BESYLATE [Concomitant]
     Indication: HYPERTENSION
     Dosage: 5 MG, QD
     Route: 048
     Dates: start: 20041113
  3. FORTZAAR [Concomitant]
     Indication: HYPERTENSION
     Dosage: 1 PER DAY
     Route: 048
     Dates: start: 20041113
  4. METFORMIN HCL [Concomitant]
     Indication: INSULIN-REQUIRING TYPE II DIABETES MELLITUS

REACTIONS (2)
  - ANAEMIA [None]
  - LEUKOCYTOSIS [None]
